FAERS Safety Report 16366482 (Version 1)
Quarter: 2019Q2

REPORT INFORMATION
  Report Type: Spontaneous
  Country: AR (occurrence: AR)
  Receive Date: 20190529
  Receipt Date: 20190529
  Transmission Date: 20190711
  Serious: Yes (Other)
  Sender: FDA-Public Use
  Company Number: AR-TEVA-2019-AR-1055542

PATIENT
  Age: 78 Year
  Sex: Female

DRUGS (2)
  1. HYDROXYCHLOROQUINE [Suspect]
     Active Substance: HYDROXYCHLOROQUINE
     Indication: RHEUMATOID ARTHRITIS
     Route: 065
  2. GLIBENCLAMIDE [Interacting]
     Active Substance: GLYBURIDE
     Indication: DIABETES MELLITUS MANAGEMENT
     Route: 048

REACTIONS (2)
  - Hypoglycaemia [Unknown]
  - Drug interaction [Unknown]
